FAERS Safety Report 4680081-0 (Version None)
Quarter: 2005Q2

REPORT INFORMATION
  Report Type: 
  Country: None (occurrence: None)
  Receive Date: 20050531
  Receipt Date: 20050517
  Transmission Date: 20051028
  Serious: Yes (Death)
  Sender: FDA-Public Use
  Company Number: RENA-11386

PATIENT
  Age: 56 Year
  Sex: Male
  Weight: 87.5 kg

DRUGS (11)
  1. RENAGEL [Suspect]
     Indication: HYPERPHOSPHATAEMIA
     Dosage: 2.4 G PO
     Route: 048
  2. FABRAZYME [Suspect]
     Indication: FABRY'S DISEASE
     Dosage: 90 MG Q2WKS IV
     Route: 042
     Dates: start: 20010614, end: 20050515
  3. THYROXINE [Concomitant]
  4. DIGOXIN [Concomitant]
  5. FRUSEMIDE [Concomitant]
  6. FELODIPINE [Concomitant]
  7. WARFARIN [Concomitant]
  8. APHA CALCIDOL [Concomitant]
  9. ALLOPURINOL [Concomitant]
  10. SENNA [Concomitant]
  11. SALMETEROL [Concomitant]

REACTIONS (7)
  - ATRIAL FIBRILLATION [None]
  - CARDIAC ARREST [None]
  - FALL [None]
  - PERITONEAL DIALYSIS [None]
  - RENAL FAILURE CHRONIC [None]
  - VENTRICULAR HYPERTROPHY [None]
  - VESTIBULAR DISORDER [None]
